FAERS Safety Report 7635665-4 (Version None)
Quarter: 2011Q3

REPORT INFORMATION
  Report Type: 
  Country: None (occurrence: None)
  Receive Date: 20110726
  Receipt Date: 20110721
  Transmission Date: 20111222
  Serious: Yes (Death, Life-Threatening, Hospitalization, Other)
  Sender: FDA-Public Use
  Company Number: PHHY2009JP53842

PATIENT
  Sex: Female
  Weight: 38 kg

DRUGS (12)
  1. EXJADE [Suspect]
     Indication: APLASTIC ANAEMIA
     Dosage: 500 MG, DAILY
     Route: 048
     Dates: start: 20090522, end: 20091007
  2. MUCOSTA [Concomitant]
     Indication: PROPHYLAXIS
     Dosage: 300 MG, UNK
     Route: 048
     Dates: start: 20090522, end: 20090925
  3. EXJADE [Suspect]
     Indication: IRON OVERLOAD
     Dosage: 125 MG, DAILY
     Route: 048
     Dates: start: 20100201
  4. PREDNISOLONE [Concomitant]
     Indication: APLASTIC ANAEMIA
     Dosage: 10 MG, UNK
     Route: 048
     Dates: start: 20090522, end: 20090925
  5. BIFIDOBACTERIUM BIFIDUM [Concomitant]
     Indication: PROPHYLAXIS
     Dosage: 3 G, UNK
     Route: 048
     Dates: start: 20090522, end: 20090925
  6. ULCERLMIN [Concomitant]
     Dosage: 3 G, UNK
     Route: 048
     Dates: start: 20090522, end: 20101013
  7. EXJADE [Suspect]
     Dosage: 500 MG, DAILY
     Route: 048
     Dates: start: 20100714, end: 20101013
  8. DESFERAL [Concomitant]
     Indication: IRON OVERLOAD
     Dosage: 1000 MG, UNK
     Route: 030
     Dates: start: 20050524, end: 20060404
  9. PREDNISOLONE [Concomitant]
     Dosage: 10 MG, UNK
     Route: 048
     Dates: start: 20090522, end: 20101013
  10. ULCERLMIN [Concomitant]
     Indication: PROPHYLAXIS
     Dosage: 3 G, UNK
     Route: 048
     Dates: start: 20090522, end: 20090925
  11. MUCOSTA [Concomitant]
     Dosage: 300 MG, UNK
     Route: 048
     Dates: start: 20090522, end: 20101013
  12. BIFIDOBACTERIUM BIFIDUM [Concomitant]
     Dosage: 3 G, UNK
     Route: 048
     Dates: start: 20090522, end: 20101013

REACTIONS (8)
  - HUMERUS FRACTURE [None]
  - BONE MARROW FAILURE [None]
  - MULTI-ORGAN FAILURE [None]
  - ACTIVITIES OF DAILY LIVING IMPAIRED [None]
  - AORTIC ANEURYSM [None]
  - SUBDURAL HAEMATOMA [None]
  - INFECTION [None]
  - FALL [None]
